FAERS Safety Report 11390051 (Version 3)
Quarter: 2015Q3

REPORT INFORMATION
  Report Type: Report from Study
  Country: US (occurrence: US)
  Receive Date: 20150818
  Receipt Date: 20150902
  Transmission Date: 20151125
  Serious: Yes (Other)
  Sender: FDA-Public Use
  Company Number: US-ASTRAZENECA-2015SE76699

PATIENT
  Age: 20146 Day
  Sex: Female
  Weight: 57.8 kg

DRUGS (7)
  1. PILLS [Suspect]
     Active Substance: UNSPECIFIED INGREDIENT
     Indication: HEART RATE ABNORMAL
     Route: 065
  2. AMATRIPLINE [Concomitant]
     Indication: DEPRESSION
     Dosage: AT NIGHT
     Dates: start: 201503
  3. BRILINTA [Suspect]
     Active Substance: TICAGRELOR
     Indication: STENT PLACEMENT
     Route: 048
     Dates: start: 20150522
  4. CRESTOR [Suspect]
     Active Substance: ROSUVASTATIN CALCIUM
     Indication: BLOOD CHOLESTEROL INCREASED
     Route: 048
     Dates: start: 2015
  5. PILLS [Suspect]
     Active Substance: UNSPECIFIED INGREDIENT
     Indication: BLOOD PRESSURE ABNORMAL
     Route: 065
  6. GABAPENTIN. [Concomitant]
     Active Substance: GABAPENTIN
     Indication: SEIZURE
     Dates: start: 2000
  7. KLONOPIN [Concomitant]
     Active Substance: CLONAZEPAM
     Indication: SEIZURE
     Dates: start: 2012

REACTIONS (10)
  - Decreased appetite [Unknown]
  - Malaise [Unknown]
  - Irritable bowel syndrome [Unknown]
  - Dizziness [Unknown]
  - Insomnia [Unknown]
  - Sluggishness [Unknown]
  - Hypoaesthesia [Unknown]
  - Dyspnoea [Unknown]
  - Venous occlusion [Unknown]
  - Nausea [Unknown]

NARRATIVE: CASE EVENT DATE: 20150802
